FAERS Safety Report 23882797 (Version 1)
Quarter: 2024Q2

REPORT INFORMATION
  Report Type: Spontaneous
  Country: US (occurrence: None)
  Receive Date: 20240522
  Receipt Date: 20240522
  Transmission Date: 20240716
  Serious: Yes (Death, Other)
  Sender: FDA-Public Use
  Company Number: US-Noden Pharma DAC-NOD202405-000021

PATIENT
  Age: 49 Year

DRUGS (1)
  1. COCAINE HYDROCHLORIDE [Suspect]
     Active Substance: COCAINE HYDROCHLORIDE
     Indication: Product used for unknown indication
     Dosage: UNKNOWN

REACTIONS (1)
  - Post procedural infection [Fatal]
